FAERS Safety Report 13079578 (Version 1)
Quarter: 2017Q1

REPORT INFORMATION
  Report Type: Spontaneous
  Country: DE (occurrence: DE)
  Receive Date: 20170103
  Receipt Date: 20170103
  Transmission Date: 20170428
  Serious: Yes (Life-Threatening, Hospitalization, Other)
  Sender: FDA-Public Use
  Company Number: DE-SHIRE-DE201619802

PATIENT
  Age: 3 Year
  Sex: Male
  Weight: 15 kg

DRUGS (1)
  1. INTUNIV [Suspect]
     Active Substance: GUANFACINE HYDROCHLORIDE
     Indication: ACCIDENTAL EXPOSURE TO PRODUCT BY CHILD
     Dosage: 3 MG, UNKNOWN (TOOK PROBABLY ONE TABLET)
     Route: 048
     Dates: start: 20161206, end: 20161206

REACTIONS (5)
  - Electrocardiogram QT prolonged [Recovered/Resolved]
  - Toxicity to various agents [Recovered/Resolved]
  - Bradycardia [Recovered/Resolved]
  - Accidental exposure to product by child [Recovered/Resolved]
  - Somnolence [Recovered/Resolved]

NARRATIVE: CASE EVENT DATE: 20161206
